FAERS Safety Report 4511906-7 (Version None)
Quarter: 2004Q4

REPORT INFORMATION
  Report Type: 
  Country: None (occurrence: None)
  Receive Date: 20041129
  Receipt Date: 20041117
  Transmission Date: 20050328
  Serious: Yes (Disabling)
  Sender: FDA-Public Use
  Company Number: US-MERCK-0411USA03029

PATIENT
  Age: 46 Year
  Sex: Female

DRUGS (2)
  1. VIOXX [Suspect]
     Indication: INFLAMMATION
     Route: 048
     Dates: start: 20040903, end: 20040101
  2. ADVIL [Concomitant]
     Route: 065

REACTIONS (3)
  - DIARRHOEA [None]
  - DIZZINESS [None]
  - VOMITING [None]
